FAERS Safety Report 10407187 (Version 6)
Quarter: 2014Q1

REPORT INFORMATION
  Report Type: Spontaneous
  Country: US (occurrence: None)
  Receive Date: 20130206
  Receipt Date: 20130206
  Transmission Date: 20141002
  Serious: Yes (Life-Threatening, Hospitalization)
  Sender: FDA-Public Use
  Company Number: DAV-AE-MTX-12-66

PATIENT
  Age: 69 Year
  Sex: Male
  Weight: 70 kg

DRUGS (12)
  1. METHOTREXATE [Suspect]
     Indication: RHEUMATOID ARTHRITIS
     Dosage: UNK (1 IN 1 WK), PER ORAL
     Route: 048
     Dates: start: 20120524
  2. HUMIRA [Suspect]
     Indication: RHEUMATOID ARTHRITIS
     Dosage: UNK (40MG, 1 IN 2 WK), SC
     Route: 058
     Dates: start: 20120524
  3. TELMISARTAN (TELMISARTAN) [Concomitant]
  4. ACETYLSALICYLIC ACID (ACETYLSALICYLIC ACID) [Concomitant]
  5. METOPROLOL TARTRATE (METOPROLOL TARTRATE) [Concomitant]
  6. ROSUVASTATIN CALCIUM (ROSUVASTATIN CALCIUM) [Concomitant]
  7. CLOPIDOGREL BISULFATE (CLOPIDOGREL BISULFATE) [Concomitant]
  8. PARACETAMOL (PARACETAMOL) [Concomitant]
  9. OMEPRAZOLE MAGNESIUM (OMEPRAZOLE MAGNESIUM) [Concomitant]
  10. TRAMADOL HYDROCHLORIDE (TRAMADOL HYDROCHLORIDE) [Concomitant]
  11. PREDNISONE (PREDNISONE) [Concomitant]
  12. FOLIC ACID (FOLIC ACID) [Concomitant]

REACTIONS (2)
  - Abscess soft tissue [None]
  - Staphylococcal infection [None]
